FAERS Safety Report 12989072 (Version 1)
Quarter: 2016Q4

REPORT INFORMATION
  Report Type: Spontaneous
  Country: DK (occurrence: DK)
  Receive Date: 20161201
  Receipt Date: 20161201
  Transmission Date: 20170207
  Serious: Yes (Hospitalization, Disabling)
  Sender: FDA-Public Use
  Company Number: PHHY2016DK160037

PATIENT
  Age: 70 Year
  Sex: Male
  Weight: 95 kg

DRUGS (5)
  1. METHOTREXATE (METHOTREXATE SODIUM) [Suspect]
     Active Substance: METHOTREXATE SODIUM
     Indication: POLYMYOSITIS
     Dosage: 25 MG, QW
     Route: 048
     Dates: start: 20140926, end: 20160802
  2. FUROSEMID COPYFARM [Concomitant]
     Indication: DIURETIC THERAPY
     Route: 065
     Dates: start: 2014
  3. LANSOPRAZOL KRKA [Concomitant]
     Indication: GASTROOESOPHAGEAL REFLUX DISEASE
     Route: 065
     Dates: start: 201502
  4. PEVISONE [Concomitant]
     Active Substance: ECONAZOLE
     Indication: INTERTRIGO
     Route: 065
     Dates: start: 201606
  5. PROLIA [Concomitant]
     Active Substance: DENOSUMAB
     Indication: OSTEOPOROSIS
     Route: 065
     Dates: start: 201411

REACTIONS (6)
  - Deep vein thrombosis [Unknown]
  - Ascites [Not Recovered/Not Resolved]
  - Pulmonary embolism [Unknown]
  - Infection [Unknown]
  - Varices oesophageal [Unknown]
  - Hepatic steatosis [Not Recovered/Not Resolved]

NARRATIVE: CASE EVENT DATE: 20160802
